FAERS Safety Report 5872436-3 (Version None)
Quarter: 2008Q3

REPORT INFORMATION
  Report Type: 
  Country: None (occurrence: None)
  Receive Date: 20080902
  Receipt Date: 20080819
  Transmission Date: 20090109
  Serious: Yes (Hospitalization)
  Sender: FDA-Public Use
  Company Number: 2008BI004124

PATIENT
  Age: 60 Year
  Sex: Male

DRUGS (6)
  1. ZEVALIN [Suspect]
     Indication: B-CELL UNCLASSIFIABLE LYMPHOMA HIGH GRADE
     Dosage: ; 1X; IV
     Route: 042
     Dates: start: 20080117, end: 20080117
  2. RITUXIMAB [Concomitant]
  3. CARMUSTINE [Concomitant]
  4. ETOPOSIDE [Concomitant]
  5. CYTARABINE [Concomitant]
  6. MELPHALAN [Concomitant]

REACTIONS (10)
  - ATRIAL FIBRILLATION [None]
  - FEBRILE BONE MARROW APLASIA [None]
  - ISCHAEMIA [None]
  - MUCOSAL INFLAMMATION [None]
  - MUSCULOSKELETAL PAIN [None]
  - MYOPERICARDITIS [None]
  - PERICARDIAL EFFUSION [None]
  - STEM CELL TRANSPLANT [None]
  - TACHYCARDIA [None]
  - VIRAL INFECTION [None]
